FAERS Safety Report 6283507-4 (Version None)
Quarter: 2009Q3

REPORT INFORMATION
  Report Type: 
  Country: None (occurrence: None)
  Receive Date: 20090724
  Receipt Date: 20090413
  Transmission Date: 20100115
  Serious: No
  Sender: FDA-Public Use
  Company Number: US-ALEXION-A200900314

PATIENT
  Sex: Female

DRUGS (13)
  1. SOLIRIS [Suspect]
     Dosage: 900 MG, UNK
  2. SOLIRIS [Suspect]
     Dosage: 900 MG, QWK
     Route: 042
     Dates: end: 20080910
  3. SOLIRIS [Suspect]
     Dosage: 1200 MG, Q2WK
     Route: 042
     Dates: start: 20080924
  4. COUMADIN [Concomitant]
  5. DILAUDID [Concomitant]
  6. POTASSIUM PHOSPHATES [Concomitant]
  7. ATIVAN [Concomitant]
  8. EFFEXOR [Concomitant]
  9. FOLIC ACID [Concomitant]
  10. LOVENOX [Concomitant]
  11. MULTIVITAMIN                       /00831701/ [Concomitant]
  12. VITAMIN B12                        /00056201/ [Concomitant]
  13. VITAMIN A [Concomitant]

REACTIONS (2)
  - PYREXIA [None]
  - RESPIRATORY TRACT INFECTION [None]
